FAERS Safety Report 6750570-3 (Version None)
Quarter: 2010Q2

REPORT INFORMATION
  Report Type: 
  Country: None (occurrence: None)
  Receive Date: 20100528
  Receipt Date: 20100528
  Transmission Date: 20101027
  Serious: Yes (Hospitalization)
  Sender: FDA-Public Use
  Company Number: None

PATIENT
  Sex: Female
  Weight: 72.5755 kg

DRUGS (1)
  1. OMEPRAZOLE [Suspect]
     Indication: GASTROENTERITIS
     Dosage: 1 CAPSULE TWICE PER DAY PO
     Route: 048
     Dates: start: 20060925, end: 20100525

REACTIONS (3)
  - BONE DISORDER [None]
  - RIB FRACTURE [None]
  - TIBIA FRACTURE [None]
